FAERS Safety Report 8726834 (Version 3)
Quarter: 2012Q4

REPORT INFORMATION
  Report Type: 
  Country: US (occurrence: US)
  Receive Date: 20120816
  Receipt Date: 20120924
  Transmission Date: 20130627
  Serious: Yes (Death, Hospitalization)
  Sender: FDA-Public Use
  Company Number: US-PFIZER INC-2012198441

PATIENT
  Age: 53 Year
  Sex: Male

DRUGS (3)
  1. RAPAMUNE [Suspect]
     Indication: RENAL TRANSPLANT
     Dosage: 2 mg AM/1 mg PM
     Route: 048
     Dates: start: 20111117, end: 20120822
  2. RAPAMUNE [Suspect]
     Indication: RENAL DISORDER
  3. PREDNISONE [Concomitant]
     Indication: TRANSPLANT
     Dosage: 5 mg, Daily
     Dates: end: 20120822

REACTIONS (2)
  - Death [Fatal]
  - Skin cancer [Unknown]
